FAERS Safety Report 23704733 (Version 2)
Quarter: 2024Q2

REPORT INFORMATION
  Report Type: Other
  Country: US (occurrence: None)
  Receive Date: 20240404
  Receipt Date: 20240410
  Transmission Date: 20240716
  Serious: Yes (Death, Other)
  Sender: FDA-Public Use
  Company Number: US-ROCHE-3536099

PATIENT

DRUGS (6)
  1. BEVACIZUMAB [Suspect]
     Active Substance: BEVACIZUMAB
     Indication: Colorectal cancer metastatic
     Route: 042
  2. FLUOROURACIL [Suspect]
     Active Substance: FLUOROURACIL
     Indication: Colorectal cancer metastatic
     Dosage: FOLLOWED BY,1200 MG/M2 INFUSION ON D1 AND 2 OR 2400 MG/M2 INFUSION OVER 46-48 HOURS FROM D1-2
     Route: 042
  3. NIVOLUMAB [Suspect]
     Active Substance: NIVOLUMAB
     Indication: Colorectal cancer metastatic
     Dosage: (240 MG AS A 30 MIN INFUSION) EVERY 2 WEEKS ON DAY 1 OF EACH TREATMENT CYCLE
     Route: 042
  4. OXALIPLATIN [Suspect]
     Active Substance: OXALIPLATIN
     Indication: Colorectal cancer metastatic
     Route: 042
  5. LEUCOVORIN [Suspect]
     Active Substance: LEUCOVORIN\LEUCOVORIN CALCIUM
     Indication: Colorectal cancer metastatic
     Route: 042
  6. LEUCOVORIN [Suspect]
     Active Substance: LEUCOVORIN\LEUCOVORIN CALCIUM
     Route: 042

REACTIONS (23)
  - Cardiac arrest [Fatal]
  - Pneumonitis [Fatal]
  - Myocarditis [Fatal]
  - Intestinal perforation [Fatal]
  - Fatigue [Unknown]
  - Liver disorder [Unknown]
  - Gastrointestinal disorder [Unknown]
  - Skin disorder [Unknown]
  - Endocrine disorder [Unknown]
  - Renal disorder [Unknown]
  - Lung disorder [Unknown]
  - Nausea [Unknown]
  - Pancreatitis acute [Unknown]
  - Colitis [Unknown]
  - Peripheral sensory neuropathy [Unknown]
  - Neuropathy peripheral [Unknown]
  - Neutropenia [Unknown]
  - Diarrhoea [Unknown]
  - Neutrophil count decreased [Unknown]
  - Aspartate aminotransferase increased [Unknown]
  - Decreased appetite [Unknown]
  - Iritis [Unknown]
  - Stomatitis [Unknown]
